FAERS Safety Report 12716429 (Version 1)
Quarter: 2016Q3

REPORT INFORMATION
  Report Type: Spontaneous
  Country: GB (occurrence: GB)
  Receive Date: 20160906
  Receipt Date: 20160906
  Transmission Date: 20161109
  Serious: Yes (Other)
  Sender: FDA-Public Use
  Company Number: GB-TEVA-687780ACC

PATIENT
  Sex: Female

DRUGS (4)
  1. ESOMEPRAZOLE [Concomitant]
     Active Substance: ESOMEPRAZOLE
     Dosage: 80 MILLIGRAM DAILY;
     Dates: start: 201604
  2. LOSARTAN. [Concomitant]
     Active Substance: LOSARTAN
     Indication: HYPERTENSION
  3. NIFEDIPINE. [Suspect]
     Active Substance: NIFEDIPINE
     Dates: start: 201608
  4. PROPRANOLOL [Concomitant]
     Active Substance: PROPRANOLOL\PROPRANOLOL HYDROCHLORIDE
     Indication: HYPERTENSION

REACTIONS (6)
  - Restlessness [Unknown]
  - Headache [Not Recovered/Not Resolved]
  - Hypotension [Unknown]
  - Insomnia [Unknown]
  - Palpitations [Unknown]
  - Drug prescribing error [Unknown]

NARRATIVE: CASE EVENT DATE: 201608
